FAERS Safety Report 11080344 (Version 1)
Quarter: 2015Q2

REPORT INFORMATION
  Report Type: Spontaneous
  Country: GB (occurrence: GB)
  Receive Date: 20150430
  Receipt Date: 20150430
  Transmission Date: 20150821
  Serious: Yes (Other)
  Sender: FDA-Public Use
  Company Number: GB-009507513-1504GBR023111

PATIENT

DRUGS (4)
  1. ABIRATERONE [Suspect]
     Active Substance: ABIRATERONE
     Indication: PROSTATE CANCER
  2. ABIRATERONE [Suspect]
     Active Substance: ABIRATERONE
     Indication: PROSTATIC SPECIFIC ANTIGEN ABNORMAL
  3. DEXAMETHASONE TABLETS BP 500MCG [Suspect]
     Active Substance: DEXAMETHASONE
     Indication: PROSTATE CANCER
     Dosage: 0.5-1 MG ONCE DAILY
     Route: 048
  4. DEXAMETHASONE TABLETS BP 500MCG [Suspect]
     Active Substance: DEXAMETHASONE
     Indication: PROSTATIC SPECIFIC ANTIGEN ABNORMAL

REACTIONS (2)
  - Prostate cancer [Unknown]
  - Drug ineffective [Unknown]
